FAERS Safety Report 23941302 (Version 2)
Quarter: 2024Q2

REPORT INFORMATION
  Report Type: Spontaneous
  Country: GB (occurrence: GB)
  Receive Date: 20240605
  Receipt Date: 20240628
  Transmission Date: 20240716
  Serious: Yes (Other)
  Sender: FDA-Public Use
  Company Number: GB-MHRA-EMIS-4050-1afc730f-34b8-4d5b-9969-3d428d3b82e5

PATIENT
  Age: 61 Year
  Sex: Male
  Weight: 108 kg

DRUGS (6)
  1. CLINDAMYCIN [Suspect]
     Active Substance: CLINDAMYCIN
     Dosage: 2 DF (FREQ:4 D)
     Dates: start: 20240528, end: 20240529
  2. AMITRIPTYLINE [Concomitant]
     Active Substance: AMITRIPTYLINE
     Indication: Pain
     Dosage: 1 DF, 1X/DAY (ONE TO BE TAKEN AT NIGHT, CAN INCREASE TO 2 TABLETS AT NIGHT AFTER 1-2 WKS IF NEEDED)
     Dates: start: 20240308
  3. BRIMONIDINE TARTRATE\TIMOLOL MALEATE [Concomitant]
     Active Substance: BRIMONIDINE TARTRATE\TIMOLOL MALEATE
     Indication: Rash
     Dosage: 1 DF, 2X/DAY
     Dates: start: 20240426
  4. DOXYCYCLINE [Concomitant]
     Active Substance: DOXYCYCLINE\DOXYCYCLINE HYCLATE
     Indication: Cellulitis
     Dosage: 2 DF (TWO TO BE TAKEN ON THE FIRST DAY)
     Dates: start: 20240509, end: 20240509
  5. DOXYCYCLINE [Concomitant]
     Active Substance: DOXYCYCLINE\DOXYCYCLINE HYCLATE
     Dosage: 1 DF, DAILY (THEN ONE TO BE TAKEN EACH DAY)
     Dates: start: 20240510
  6. SPIKEVAX XBB.1.5 [Concomitant]
     Dosage: 0.5 ML
     Route: 030
     Dates: start: 20240528, end: 20240528

REACTIONS (3)
  - Erythema [Recovered/Resolved]
  - Swelling face [Recovered/Resolved]
  - Pruritus [Recovered/Resolved]

NARRATIVE: CASE EVENT DATE: 20240528
